FAERS Safety Report 8340144-5 (Version None)
Quarter: 2012Q2

REPORT INFORMATION
  Report Type: 
  Country: None (occurrence: None)
  Receive Date: 20120507
  Receipt Date: 20120430
  Transmission Date: 20120825
  Serious: Yes (Hospitalization, Other)
  Sender: FDA-Public Use
  Company Number: US-BAYER-2012-042773

PATIENT
  Age: 44 Year
  Sex: Female

DRUGS (7)
  1. ECHINACEA [Concomitant]
  2. VITAMIN C [Concomitant]
  3. TYLENOL (CAPLET) [Concomitant]
     Indication: PAIN
  4. GARLIC [Concomitant]
  5. PERCOCET [Concomitant]
  6. YASMIN [Suspect]
     Indication: ENDOMETRIOSIS
     Dosage: UNK
     Dates: start: 20010201
  7. IBUPROFEN TABLETS [Concomitant]
     Indication: PAIN

REACTIONS (2)
  - PULMONARY EMBOLISM [None]
  - DEEP VEIN THROMBOSIS [None]
